FAERS Safety Report 4319572-0 (Version None)
Quarter: 2004Q1

REPORT INFORMATION
  Report Type: 
  Country: None (occurrence: None)
  Receive Date: 20040316
  Receipt Date: 20040227
  Transmission Date: 20041129
  Serious: Yes (Other)
  Sender: FDA-Public Use
  Company Number: USA040260315

PATIENT
  Age: 66 Year
  Sex: Female

DRUGS (3)
  1. EVISTA [Suspect]
  2. FORTEO [Suspect]
     Dates: start: 20040201
  3. FOSAMAX [Concomitant]

REACTIONS (7)
  - FALL [None]
  - FEELING ABNORMAL [None]
  - GROIN PAIN [None]
  - INTERVERTEBRAL DISC PROTRUSION [None]
  - MUSCLE TIGHTNESS [None]
  - MUSCULOSKELETAL STIFFNESS [None]
  - THORACIC VERTEBRAL FRACTURE [None]
